FAERS Safety Report 11157772 (Version 1)
Quarter: 2015Q2

REPORT INFORMATION
  Report Type: Spontaneous
  Country: FR (occurrence: None)
  Receive Date: 20150601
  Receipt Date: 20150601
  Transmission Date: 20150821
  Serious: Yes (Hospitalization)
  Sender: FDA-Public Use
  Company Number: 2015SA070853

PATIENT
  Age: 13 Year
  Sex: Female

DRUGS (1)
  1. NAUTAMINE (DIPHENHYDRAMINE) [Suspect]
     Active Substance: BIETANAUTINE
     Route: 048
     Dates: start: 20141111, end: 20141111

REACTIONS (1)
  - Toxicity to various agents [None]

NARRATIVE: CASE EVENT DATE: 20141111
